FAERS Safety Report 4497158-5 (Version None)
Quarter: 2004Q4

REPORT INFORMATION
  Report Type: 
  Country: None (occurrence: None)
  Receive Date: 20041110
  Receipt Date: 20041029
  Transmission Date: 20050328
  Serious: Yes (Hospitalization)
  Sender: FDA-Public Use
  Company Number: GB-BRISTOL-MYERS SQUIBB COMPANY-12749206

PATIENT
  Age: 50 Year
  Sex: Female
  Weight: 71 kg

DRUGS (3)
  1. DOXORUBICIN [Suspect]
     Indication: ENDOMETRIAL CANCER
     Dosage: THERAPY DATES: 09-JUL TO 01-OCT-2004; CUMULATIVE - 398 MG
     Dates: start: 20041001, end: 20041001
  2. PACLITAXEL [Suspect]
     Indication: ENDOMETRIAL CANCER
     Dosage: THERAPY DATES: 09-JUL TO 01-OCT-2004; CUMULATIVE - 1081 MG
     Dates: start: 20041001, end: 20041001
  3. CISPLATIN [Suspect]
     Indication: ENDOMETRIAL CANCER
     Dosage: THERAPY DATES: 09-JUL TO 01-OCT-2004; CUMULATIVE - 441 MG
     Dates: start: 20041001, end: 20041001

REACTIONS (2)
  - NEUTROPENIC SEPSIS [None]
  - URINARY TRACT INFECTION [None]
